FAERS Safety Report 6886011-5 (Version None)
Quarter: 2010Q3

REPORT INFORMATION
  Report Type: 
  Country: None (occurrence: None)
  Receive Date: 20100729
  Receipt Date: 20090218
  Transmission Date: 20110219
  Serious: No
  Sender: FDA-Public Use
  Company Number: CA-PFIZER INC-2009166060

PATIENT
  Age: 73 Year
  Sex: Male

DRUGS (7)
  1. CELEBREX [Suspect]
     Indication: LIGAMENTITIS
     Dosage: 100 MG, 2X/DAY
     Route: 048
     Dates: start: 20081223, end: 20090201
  2. CRESTOR [Concomitant]
     Dosage: 40 MG, UNK
  3. ACETYLSALICYLIC ACID [Concomitant]
     Dosage: UNK
  4. EZETROL [Concomitant]
     Dosage: UNK
  5. PERINDOPRIL ERBUMINE [Concomitant]
     Dosage: UNK
  6. OMEGA 3-6-9 [Concomitant]
     Dosage: UNK
  7. GLUCOSAMINE [Concomitant]
     Dosage: UNK

REACTIONS (3)
  - OEDEMA PERIPHERAL [None]
  - OSTEOARTHRITIS [None]
  - PAIN IN EXTREMITY [None]
